FAERS Safety Report 16402275 (Version 2)
Quarter: 2019Q4

REPORT INFORMATION
  Report Type: Report from Study
  Country: PK (occurrence: PK)
  Receive Date: 20190607
  Receipt Date: 20191226
  Transmission Date: 20200122
  Serious: Yes (Other)
  Sender: FDA-Public Use
  Company Number: PHHY2019PK127894

PATIENT
  Age: 70 Year
  Sex: Male
  Weight: 56 kg

DRUGS (2)
  1. TASIGNA [Suspect]
     Active Substance: NILOTINIB
     Indication: CHRONIC MYELOID LEUKAEMIA
     Dosage: 600 MG, QD (2 DF IN  MORNING AND 1 DF IN NIGHT (2+0+1))
     Route: 048
     Dates: start: 20181225, end: 20190531
  2. TASIGNA [Suspect]
     Active Substance: NILOTINIB
     Dosage: 600 MG, QD  (2 DF IN  MORNING AND 1 DF IN NIGHT (2+0+1))
     Route: 048
     Dates: end: 20191215

REACTIONS (1)
  - Anaemia [Not Recovered/Not Resolved]

NARRATIVE: CASE EVENT DATE: 20190531
